FAERS Safety Report 11440929 (Version 1)
Quarter: 2015Q3

REPORT INFORMATION
  Report Type: Spontaneous
  Country: US (occurrence: US)
  Receive Date: 20150821
  Receipt Date: 20150821
  Transmission Date: 20151125
  Serious: No
  Sender: FDA-Public Use
  Company Number: US-ELI_LILLY_AND_COMPANY-US200711002629

PATIENT
  Sex: Male

DRUGS (5)
  1. VITAMINS [Concomitant]
     Active Substance: VITAMINS
  2. METOPROLOL [Concomitant]
     Active Substance: METOPROLOL
  3. ZETIA [Concomitant]
     Active Substance: EZETIMIBE
  4. CYMBALTA [Suspect]
     Active Substance: DULOXETINE HYDROCHLORIDE
     Indication: NEUROPATHY PERIPHERAL
     Dosage: 30 MG, DAILY (1/D)
     Dates: start: 200710, end: 2007
  5. LIPITOR [Concomitant]
     Active Substance: ATORVASTATIN CALCIUM

REACTIONS (3)
  - Feeling abnormal [Not Recovered/Not Resolved]
  - Disturbance in attention [Not Recovered/Not Resolved]
  - Major depression [Recovered/Resolved]

NARRATIVE: CASE EVENT DATE: 200710
